FAERS Safety Report 4557286-2 (Version None)
Quarter: 2005Q1

REPORT INFORMATION
  Report Type: 
  Country: None (occurrence: None)
  Receive Date: 20050118
  Receipt Date: 20050103
  Transmission Date: 20050727
  Serious: Yes (Hospitalization)
  Sender: FDA-Public Use
  Company Number: 2004225135FR

PATIENT
  Age: 27 Year
  Sex: Female
  Weight: 50 kg

DRUGS (3)
  1. XANAX [Suspect]
     Indication: DEPRESSION
     Dosage: (0.5 MG, 1 N 3 D), ORAL
     Route: 048
     Dates: start: 20040529, end: 20040608
  2. CYAMEMAZINE (CYAMEMAZINE) [Suspect]
     Indication: DEPRESSION
     Dosage: 40 MG/ML, ORAL
     Route: 048
     Dates: start: 20040529, end: 20040607
  3. CITALOPRAM (CITALOPRAM) [Suspect]
     Indication: DEPRESSION
     Dosage: 20 MG, ORAL
     Route: 048
     Dates: start: 20040529, end: 20040608

REACTIONS (11)
  - CYTOLYTIC HEPATITIS [None]
  - DIARRHOEA [None]
  - HEADACHE [None]
  - HEPATIC STEATOSIS [None]
  - HYPERTHERMIA [None]
  - MUSCULOSKELETAL STIFFNESS [None]
  - NECK PAIN [None]
  - RASH PAPULAR [None]
  - RED BLOOD CELLS CSF POSITIVE [None]
  - REFUSAL OF TREATMENT BY PATIENT [None]
  - SCRATCH [None]
